FAERS Safety Report 8665805 (Version 2)
Quarter: 2012Q4

REPORT INFORMATION
  Report Type: 
  Country: AU (occurrence: AU)
  Receive Date: 20120716
  Receipt Date: 20120830
  Transmission Date: 20130627
  Serious: Yes (Other)
  Sender: FDA-Public Use
  Company Number: AU-PFIZER INC-2012168161

PATIENT
  Age: 60 Year
  Sex: Female
  Weight: 66.8 kg

DRUGS (3)
  1. SUTENT [Suspect]
     Indication: METASTATIC RENAL CELL CARCINOMA
     Dosage: 50 mg, 1x/day
     Route: 048
     Dates: start: 20111124, end: 201206
  2. DEXAMETHASONE [Concomitant]
     Indication: METASTATIC RENAL CELL CARCINOMA
     Dosage: 2 mg, 1x/day
     Route: 048
     Dates: start: 2011
  3. MS CONTIN [Concomitant]
     Indication: METASTATIC RENAL CELL CARCINOMA
     Dosage: 30 mg, 2x/day
     Route: 048
     Dates: start: 2011

REACTIONS (2)
  - Nephrotic syndrome [Recovered/Resolved]
  - Haematuria [Recovered/Resolved]
